FAERS Safety Report 10067344 (Version 1)
Quarter: 2014Q2

REPORT INFORMATION
  Report Type: Spontaneous
  Country: TR (occurrence: TR)
  Receive Date: 20140409
  Receipt Date: 20140409
  Transmission Date: 20141212
  Serious: Yes (Life-Threatening)
  Sender: FDA-Public Use
  Company Number: TR-MERCK-1404TUR003057

PATIENT
  Age: 66 Year
  Sex: Female
  Weight: 100 kg

DRUGS (3)
  1. VICTRELIS [Suspect]
     Dosage: 4 TABLETS, THREE TIMES A DAY
     Route: 048
     Dates: end: 2014
  2. PEG-INTRON [Suspect]
     Dosage: STRENGTH REPORTED AS 120, ONCE A WEEK
     Route: 030
     Dates: end: 2014
  3. REBETOL [Suspect]
     Dosage: UNK
     Route: 048

REACTIONS (2)
  - Ascites [Recovered/Resolved]
  - Hepatic cirrhosis [Recovered/Resolved]
